FAERS Safety Report 20905895 (Version 8)
Quarter: 2022Q3

REPORT INFORMATION
  Report Type: Spontaneous
  Country: US (occurrence: US)
  Receive Date: 20220602
  Receipt Date: 20220907
  Transmission Date: 20221026
  Serious: Yes (Other)
  Sender: FDA-Public Use
  Company Number: US-PHARMAESSENTIA-US-2022-PEC-000657

PATIENT
  Age: 53 Year
  Sex: Female

DRUGS (6)
  1. BESREMI [Suspect]
     Active Substance: ROPEGINTERFERON ALFA-2B-NJFT
     Indication: Polycythaemia vera
     Dosage: 100 MCG, Q2W
     Route: 058
     Dates: start: 20220516
  2. BESREMI [Suspect]
     Active Substance: ROPEGINTERFERON ALFA-2B-NJFT
     Dosage: 50 MCG (FOR TWO MONTHS)
     Route: 058
  3. BESREMI [Suspect]
     Active Substance: ROPEGINTERFERON ALFA-2B-NJFT
     Dosage: UNK
     Route: 058
  4. SCOPOLAMINE [Concomitant]
     Active Substance: SCOPOLAMINE
     Indication: Product used for unknown indication
     Route: 065
  5. GABAPENTIN [Concomitant]
     Active Substance: GABAPENTIN
     Indication: Pain
     Dosage: INCREASED
  6. HYDROXYUREA [Concomitant]
     Active Substance: HYDROXYUREA
     Indication: Product used for unknown indication
     Route: 065

REACTIONS (26)
  - Bradycardia [Not Recovered/Not Resolved]
  - Arrhythmia [Recovered/Resolved]
  - Ovarian neoplasm [Unknown]
  - Oxygen saturation decreased [Unknown]
  - Atrial fibrillation [Unknown]
  - Crying [Unknown]
  - Fibromyalgia [Unknown]
  - Restless legs syndrome [Unknown]
  - Oral pain [Unknown]
  - Ventricular hypertrophy [Unknown]
  - Wrong technique in product usage process [Unknown]
  - Needle issue [Unknown]
  - Device connection issue [Unknown]
  - Inappropriate schedule of product administration [Unknown]
  - Red blood cell count increased [Not Recovered/Not Resolved]
  - Chest pain [Unknown]
  - Urinary tract infection [Unknown]
  - Pain in extremity [Unknown]
  - Rash [Unknown]
  - Injection site discolouration [Unknown]
  - Diarrhoea [Not Recovered/Not Resolved]
  - Bone pain [Recovered/Resolved]
  - Fatigue [Unknown]
  - Insomnia [Unknown]
  - Nightmare [Unknown]
  - Pain [Unknown]

NARRATIVE: CASE EVENT DATE: 20220501
